FAERS Safety Report 7280183-9 (Version None)
Quarter: 2011Q1

REPORT INFORMATION
  Report Type: 
  Country: None (occurrence: None)
  Receive Date: 20110208
  Receipt Date: 20110128
  Transmission Date: 20110831
  Serious: Yes (Hospitalization)
  Sender: FDA-Public Use
  Company Number: ES-JNJFOC-20110200318

PATIENT
  Age: 31 Year
  Sex: Male

DRUGS (4)
  1. ZYPREXA [Concomitant]
     Indication: SCHIZOPHRENIA
  2. INVEGA [Suspect]
     Indication: SCHIZOPHRENIA
     Route: 048
  3. PROZAC [Concomitant]
     Indication: ILL-DEFINED DISORDER
  4. VESICARE [Concomitant]
     Indication: ILL-DEFINED DISORDER

REACTIONS (6)
  - SINUS TACHYCARDIA [None]
  - SUICIDE ATTEMPT [None]
  - ELECTROCARDIOGRAM REPOLARISATION ABNORMALITY [None]
  - PSYCHOTIC DISORDER [None]
  - INCORRECT DOSE ADMINISTERED [None]
  - MULTIPLE DRUG OVERDOSE INTENTIONAL [None]
